FAERS Safety Report 6243774-X (Version None)
Quarter: 2009Q2

REPORT INFORMATION
  Report Type: 
  Country: None (occurrence: None)
  Receive Date: 20090619
  Receipt Date: 20090120
  Transmission Date: 20091009
  Serious: Yes (Hospitalization)
  Sender: FDA-Public Use
  Company Number: 2009PL000073

PATIENT
  Age: 50 Year
  Sex: Female
  Weight: 96.4 kg

DRUGS (8)
  1. AZATHIOPRINE [Suspect]
     Indication: CROHN'S DISEASE
     Dosage: 200 MG;QD;PO
     Route: 048
     Dates: start: 20070625, end: 20070710
  2. PLACEBO (PLACEBO) LYOPHILIZED POWDER (NO PREF. NAME) [Suspect]
     Indication: CROHN'S DISEASE
     Dosage: 40 ML;QD;IV
     Route: 042
     Dates: start: 20070625, end: 20070625
  3. FERRO GRADUMET [Concomitant]
  4. HYDROXOCOBALAMINE [Concomitant]
  5. LEVOTHYROXINE SODIUM [Concomitant]
  6. SELOKEEN /00376903/ [Concomitant]
  7. SALOFALK /00000301/ [Concomitant]
  8. TAVEGIL /00137201/ [Concomitant]

REACTIONS (1)
  - PYREXIA [None]
